FAERS Safety Report 19686593 (Version 1)
Quarter: 2021Q3

REPORT INFORMATION
  Report Type: Spontaneous
  Country: US (occurrence: US)
  Receive Date: 20210811
  Receipt Date: 20210811
  Transmission Date: 20211014
  Serious: No
  Sender: FDA-Public Use
  Company Number: US-TEVA-2021-US-1939767

PATIENT
  Age: 36 Year
  Sex: Female

DRUGS (2)
  1. AMBRISENTAN [Suspect]
     Active Substance: AMBRISENTAN
     Route: 065
  2. TADALAFIL. [Suspect]
     Active Substance: TADALAFIL
     Route: 065

REACTIONS (1)
  - Headache [Recovered/Resolved]
